FAERS Safety Report 9183316 (Version 1)
Quarter: 2012Q4

REPORT INFORMATION
  Report Type: 
  Country: US (occurrence: US)
  Receive Date: 20121101
  Receipt Date: 20121101
  Transmission Date: 20130627
  Serious: Yes (Death, Hospitalization, Other)
  Sender: FDA-Public Use
  Company Number: US-BAXTER-2012BAX020729

PATIENT
  Sex: Female

DRUGS (1)
  1. DIANEAL LOW CALCIUM [Suspect]
     Indication: PERITONEAL DIALYSIS
     Route: 033
     Dates: end: 20121018

REACTIONS (8)
  - Acute myocardial infarction [Fatal]
  - Failure to thrive [Fatal]
  - Urinary tract infection [Unknown]
  - Decreased appetite [Unknown]
  - Blood albumin decreased [Unknown]
  - Asthenia [Unknown]
  - Hypophagia [Unknown]
  - Malaise [Unknown]
